FAERS Safety Report 16026885 (Version 1)
Quarter: 2019Q1

REPORT INFORMATION
  Report Type: Spontaneous
  Country: CZ (occurrence: CZ)
  Receive Date: 20190303
  Receipt Date: 20190303
  Transmission Date: 20190418
  Serious: Yes (Other)
  Sender: FDA-Public Use
  Company Number: PHHY2019CZ046078

PATIENT
  Sex: Male

DRUGS (2)
  1. ENTRESTO [Suspect]
     Active Substance: SACUBITRIL\VALSARTAN
     Dosage: 100 MG, BID (49/51 MG)
     Route: 065
     Dates: start: 201704
  2. ENTRESTO [Suspect]
     Active Substance: SACUBITRIL\VALSARTAN
     Indication: CARDIAC FAILURE
     Dosage: 1 DF, BID (24/26 MG)
     Route: 065
     Dates: start: 201610, end: 201704

REACTIONS (5)
  - Weight increased [Unknown]
  - Atrial fibrillation [Unknown]
  - Heart rate irregular [Unknown]
  - Blood creatinine increased [Unknown]
  - Ventricular tachycardia [Unknown]

NARRATIVE: CASE EVENT DATE: 201707
